FAERS Safety Report 6382066-5 (Version None)
Quarter: 2009Q3

REPORT INFORMATION
  Report Type: 
  Country: None (occurrence: None)
  Receive Date: 20090930
  Receipt Date: 20090918
  Transmission Date: 20100115
  Serious: Yes (Hospitalization, Other)
  Sender: FDA-Public Use
  Company Number: PHEH2009US11312

PATIENT
  Sex: Female

DRUGS (3)
  1. EXJADE [Suspect]
     Indication: IRON OVERLOAD
     Dosage: 1250 MG, QD
     Route: 048
     Dates: start: 20090830
  2. EXJADE [Suspect]
     Indication: SICKLE CELL ANAEMIA
     Dosage: NO TREATMENT
  3. EXJADE [Suspect]
     Dosage: ^LOWER DOSE^

REACTIONS (4)
  - DEHYDRATION [None]
  - DIARRHOEA [None]
  - PAIN [None]
  - SICKLE CELL ANAEMIA WITH CRISIS [None]
